FAERS Safety Report 8576278-X (Version None)
Quarter: 2012Q3

REPORT INFORMATION
  Report Type: 
  Country: None (occurrence: None)
  Receive Date: 20120807
  Receipt Date: 20120803
  Transmission Date: 20120928
  Serious: Yes (Other)
  Sender: FDA-Public Use
  Company Number: US-ROCHE-760340

PATIENT
  Sex: Male
  Weight: 77.1 kg

DRUGS (1)
  1. ACCUTANE [Suspect]
     Indication: ACNE CYSTIC
     Route: 048
     Dates: start: 19981201, end: 19990401

REACTIONS (7)
  - CROHN'S DISEASE [None]
  - INTESTINAL OBSTRUCTION [None]
  - ANAL FISTULA [None]
  - INFLAMMATORY BOWEL DISEASE [None]
  - DEPRESSION [None]
  - SUICIDAL IDEATION [None]
  - PERIRECTAL ABSCESS [None]
